FAERS Safety Report 5068728-0 (Version None)
Quarter: 2006Q3

REPORT INFORMATION
  Report Type: 
  Country: None (occurrence: None)
  Receive Date: 20060802
  Receipt Date: 20060303
  Transmission Date: 20061208
  Serious: No
  Sender: FDA-Public Use
  Company Number: US-BRISTOL-MYERS SQUIBB COMPANY-13303136

PATIENT
  Age: 75 Year
  Sex: Male

DRUGS (6)
  1. COUMADIN [Suspect]
     Indication: THROMBOSIS
     Dosage: 5 MG TUES, THURS, SAT AND SUN; 7.5 MG MON, WED, FRI
  2. PACERONE [Interacting]
     Indication: VENTRICULAR ARRHYTHMIA
     Route: 048
     Dates: start: 20050101
  3. PACERONE [Interacting]
     Route: 048
  4. ALTACE [Concomitant]
  5. PRANDIN [Concomitant]
  6. METFORMIN HYDROCHLORIDE [Concomitant]

REACTIONS (3)
  - DRUG INTERACTION [None]
  - INTERNATIONAL NORMALISED RATIO DECREASED [None]
  - THYROID NEOPLASM [None]
